FAERS Safety Report 6562517-3 (Version None)
Quarter: 2010Q1

REPORT INFORMATION
  Report Type: 
  Country: None (occurrence: None)
  Receive Date: 20100130
  Receipt Date: 20091109
  Transmission Date: 20100710
  Serious: No
  Sender: FDA-Public Use
  Company Number: US-ABBOTT-09P-163-0607656-00

PATIENT
  Sex: Female
  Weight: 57.204 kg

DRUGS (9)
  1. HUMIRA [Suspect]
     Indication: CROHN'S DISEASE
     Dosage: DAY 1 LOADING DOSE
     Dates: start: 20091107
  2. HUMIRA [Suspect]
  3. DIAZIDE [Concomitant]
     Indication: MENIERE'S DISEASE
     Dates: start: 20080101
  4. EFFEXOR [Concomitant]
     Indication: DEPRESSION
  5. BUSPAR [Concomitant]
     Indication: DRUG USE FOR UNKNOWN INDICATION
  6. TRAZODONE [Concomitant]
     Indication: DRUG USE FOR UNKNOWN INDICATION
  7. NEXIUM [Concomitant]
     Indication: GASTROOESOPHAGEAL REFLUX DISEASE
  8. LIPITOR [Concomitant]
     Indication: DRUG USE FOR UNKNOWN INDICATION
  9. PENTASA [Concomitant]
     Indication: DRUG USE FOR UNKNOWN INDICATION

REACTIONS (1)
  - INJECTION SITE PAIN [None]
